FAERS Safety Report 5399789-7 (Version None)
Quarter: 2007Q3

REPORT INFORMATION
  Report Type: 
  Country: None (occurrence: None)
  Receive Date: 20070730
  Receipt Date: 20070718
  Transmission Date: 20080115
  Serious: Yes (Other)
  Sender: FDA-Public Use
  Company Number: CA-JNJFOC-20070704202

PATIENT
  Age: 33 Year
  Sex: Male

DRUGS (1)
  1. REMICADE [Suspect]
     Indication: CROHN'S DISEASE
     Route: 042

REACTIONS (7)
  - CHEST DISCOMFORT [None]
  - CHILLS [None]
  - DEHYDRATION [None]
  - DIZZINESS [None]
  - GASTROINTESTINAL PAIN [None]
  - TREMOR [None]
  - VOMITING [None]
